FAERS Safety Report 8167246-0 (Version None)
Quarter: 2012Q1

REPORT INFORMATION
  Report Type: 
  Country: None (occurrence: None)
  Receive Date: 20120227
  Receipt Date: 20120222
  Transmission Date: 20120608
  Serious: Yes (Life-Threatening)
  Sender: FDA-Public Use
  Company Number: US-JNJFOC-20051000540

PATIENT
  Sex: Female
  Weight: 58.1 kg

DRUGS (4)
  1. TYLENOL PM [Suspect]
     Indication: SUICIDE ATTEMPT
     Route: 048
     Dates: start: 20050920, end: 20050920
  2. BENADRYL [Suspect]
     Route: 048
  3. TRAMADOL HCL [Suspect]
     Indication: SUICIDE ATTEMPT
     Route: 048
     Dates: start: 20050920, end: 20050920
  4. BENADRYL [Suspect]
     Indication: SUICIDE ATTEMPT
     Route: 048
     Dates: start: 20050920, end: 20050920

REACTIONS (8)
  - NAUSEA [None]
  - SUICIDE ATTEMPT [None]
  - HYPERTENSION [None]
  - INTENTIONAL OVERDOSE [None]
  - SOMNOLENCE [None]
  - DEPRESSED LEVEL OF CONSCIOUSNESS [None]
  - MEDICATION ERROR [None]
  - SWELLING FACE [None]
